FAERS Safety Report 13122301 (Version 2)
Quarter: 2017Q1

REPORT INFORMATION
  Report Type: Spontaneous
  Country: US (occurrence: US)
  Receive Date: 20170117
  Receipt Date: 20170123
  Transmission Date: 20170428
  Serious: Yes (Hospitalization)
  Sender: FDA-Public Use
  Company Number: US-ASTRAZENECA-2017SE02967

PATIENT
  Age: 975 Month
  Sex: Male
  Weight: 93 kg

DRUGS (6)
  1. BRILINTA [Suspect]
     Active Substance: TICAGRELOR
     Indication: STENT PLACEMENT
     Route: 048
     Dates: start: 20170101
  2. BABY ASPIRIN [Concomitant]
     Active Substance: ASPIRIN
     Indication: ADJUVANT THERAPY
     Route: 048
     Dates: start: 201606
  3. BRILINTA [Suspect]
     Active Substance: TICAGRELOR
     Indication: STENT PLACEMENT
     Route: 048
     Dates: start: 201606, end: 201610
  4. COREG [Concomitant]
     Active Substance: CARVEDILOL
     Indication: PROPHYLAXIS
     Route: 048
     Dates: start: 201701
  5. BRILINTA [Suspect]
     Active Substance: TICAGRELOR
     Indication: STENT PLACEMENT
     Route: 048
     Dates: start: 201610, end: 20170101
  6. LIPITOR [Concomitant]
     Active Substance: ATORVASTATIN CALCIUM
     Indication: ARTERIOSCLEROSIS
     Route: 048
     Dates: start: 201701

REACTIONS (6)
  - Drug dose omission [Unknown]
  - Off label use [Unknown]
  - Myocardial infarction [Recovering/Resolving]
  - Dyspnoea [Unknown]
  - Product use issue [Unknown]
  - Coronary artery thrombosis [Recovering/Resolving]

NARRATIVE: CASE EVENT DATE: 201606
